FAERS Safety Report 6327262-8 (Version None)
Quarter: 2009Q3

REPORT INFORMATION
  Report Type: 
  Country: None (occurrence: None)
  Receive Date: 20090825
  Receipt Date: 20090821
  Transmission Date: 20100115
  Serious: Yes (Life-Threatening)
  Sender: FDA-Public Use
  Company Number: JP-EISAI INC.-E2020-05095-SPO-JP

PATIENT
  Age: 84 Year
  Weight: 37 kg

DRUGS (7)
  1. ARICEPT [Suspect]
     Indication: DEMENTIA ALZHEIMER'S TYPE
     Route: 048
  2. MAGMITT [Concomitant]
     Route: 048
  3. VASOLAN [Concomitant]
     Route: 048
  4. TRICOR [Concomitant]
     Route: 048
  5. PANTOSIN [Concomitant]
     Route: 048
  6. PURSENNID [Concomitant]
     Route: 048
  7. DIGOSIN [Concomitant]
     Route: 048

REACTIONS (1)
  - TORSADE DE POINTES [None]
